FAERS Safety Report 7028096-1 (Version None)
Quarter: 2010Q3

REPORT INFORMATION
  Report Type: 
  Country: None (occurrence: None)
  Receive Date: 20100930
  Receipt Date: 20100923
  Transmission Date: 20110219
  Serious: Yes (Hospitalization, Other)
  Sender: FDA-Public Use
  Company Number: 2010SP006052

PATIENT
  Age: 24 Year
  Sex: Female
  Weight: 117.9352 kg

DRUGS (3)
  1. NUVARING [Suspect]
     Indication: CONTRACEPTION
     Dosage: 1 DF, QM; VAG
     Route: 067
     Dates: start: 20080428, end: 20081002
  2. ZOLOFT [Concomitant]
  3. ATIVAN [Concomitant]

REACTIONS (28)
  - ANXIETY [None]
  - BACK PAIN [None]
  - BLOOD TRIGLYCERIDES INCREASED [None]
  - BRONCHITIS [None]
  - CHEST PAIN [None]
  - CONTUSION [None]
  - DIABETES MELLITUS [None]
  - DYSPNOEA [None]
  - DYSURIA [None]
  - FIBROCYSTIC BREAST DISEASE [None]
  - HERPES ZOSTER [None]
  - HYPOAESTHESIA [None]
  - INFLUENZA [None]
  - INTERNATIONAL NORMALISED RATIO DECREASED [None]
  - KIDNEY INFECTION [None]
  - MIGRAINE [None]
  - MUSCLE SPASMS [None]
  - MUSCULOSKELETAL PAIN [None]
  - NEPHROLITHIASIS [None]
  - OVARIAN CYST [None]
  - PARAESTHESIA [None]
  - PLEURAL EFFUSION [None]
  - POLYDIPSIA [None]
  - PULMONARY EMBOLISM [None]
  - PULMONARY INFARCTION [None]
  - THROMBOPHLEBITIS SUPERFICIAL [None]
  - WEIGHT LOSS POOR [None]
  - WHITE BLOOD CELL COUNT INCREASED [None]
